FAERS Safety Report 5649929-7 (Version None)
Quarter: 2008Q1

REPORT INFORMATION
  Report Type: 
  Country: None (occurrence: None)
  Receive Date: 20080304
  Receipt Date: 20080221
  Transmission Date: 20080703
  Serious: Yes (Other)
  Sender: FDA-Public Use
  Company Number: GB-BAYER-200813610GPV

PATIENT
  Age: 65 Year
  Sex: Male

DRUGS (1)
  1. CIPROFLOXACIN [Suspect]
     Indication: LOWER RESPIRATORY TRACT INFECTION
     Route: 065

REACTIONS (1)
  - PSEUDOPORPHYRIA [None]
